FAERS Safety Report 13752481 (Version 1)
Quarter: 2017Q3

REPORT INFORMATION
  Report Type: Spontaneous
  Country: US (occurrence: US)
  Receive Date: 20170713
  Receipt Date: 20170713
  Transmission Date: 20171127
  Serious: No
  Sender: FDA-Public Use
  Company Number: US-PFIZER INC-2017305284

PATIENT
  Age: 64 Year
  Sex: Female

DRUGS (4)
  1. PRISTIQ EXTENDED-RELEASE [Suspect]
     Active Substance: DESVENLAFAXINE SUCCINATE
     Indication: DEPRESSION
     Dosage: 50 MG, 1X/DAY
     Route: 048
     Dates: start: 2017, end: 2017
  2. PRISTIQ EXTENDED-RELEASE [Suspect]
     Active Substance: DESVENLAFAXINE SUCCINATE
     Dosage: HALF A TABLET EVERY OTHER DAY
     Route: 048
     Dates: start: 2017, end: 2017
  3. PRISTIQ EXTENDED-RELEASE [Suspect]
     Active Substance: DESVENLAFAXINE SUCCINATE
     Dosage: 50 MG PILL EVERY OTHER DAY
     Route: 048
     Dates: start: 2017
  4. PRISTIQ EXTENDED-RELEASE [Suspect]
     Active Substance: DESVENLAFAXINE SUCCINATE
     Dosage: 25 MG, 1X/DAY (HALF OF 50 MG TABLET)
     Route: 048
     Dates: start: 2017, end: 2017

REACTIONS (7)
  - Pain [Recovered/Resolved]
  - Withdrawal syndrome [Unknown]
  - Agitation [Recovered/Resolved]
  - Drug prescribing error [Unknown]
  - Abdominal pain upper [Unknown]
  - Weight increased [Unknown]
  - Intentional product misuse [Unknown]
